FAERS Safety Report 6533289-3 (Version None)
Quarter: 2010Q1

REPORT INFORMATION
  Report Type: 
  Country: None (occurrence: None)
  Receive Date: 20100111
  Receipt Date: 20100106
  Transmission Date: 20100710
  Serious: Yes (Hospitalization)
  Sender: FDA-Public Use
  Company Number: US-MERCK-0912USA02495

PATIENT
  Age: 58 Year
  Sex: Female

DRUGS (6)
  1. JANUVIA [Suspect]
     Indication: TYPE 2 DIABETES MELLITUS
     Route: 048
     Dates: start: 20090303, end: 20090803
  2. ARIMIDEX [Concomitant]
     Route: 065
  3. CALCIUM (UNSPECIFIED) [Concomitant]
     Route: 065
  4. EFFEXOR XR [Concomitant]
     Route: 065
  5. METOPROLOL [Concomitant]
     Route: 065
  6. NEXIUM [Concomitant]
     Route: 065

REACTIONS (5)
  - BREAST SARCOMA [None]
  - CHOLELITHIASIS [None]
  - MALIGNANT HYPERTENSION [None]
  - PANCREATITIS [None]
  - THROMBOCYTOPENIA [None]
